FAERS Safety Report 6493473-4 (Version None)
Quarter: 2009Q4

REPORT INFORMATION
  Report Type: 
  Country: None (occurrence: None)
  Receive Date: 20091214
  Receipt Date: 20091201
  Transmission Date: 20100525
  Serious: Yes (Other)
  Sender: FDA-Public Use
  Company Number: US-PFIZER INC-2009293532

PATIENT
  Sex: Female

DRUGS (5)
  1. MEDROL [Suspect]
     Indication: INTERVERTEBRAL DISC PROTRUSION
     Dosage: UNK
     Route: 048
     Dates: start: 20090601, end: 20090101
  2. DEMEROL [Suspect]
     Indication: INTERVERTEBRAL DISC PROTRUSION
     Dosage: UNK
     Route: 048
  3. KENALOG [Suspect]
     Indication: INTERVERTEBRAL DISC PROTRUSION
  4. GLEEVEC [Concomitant]
     Indication: LEUKAEMIA
     Dosage: 400 MG, DAILY
     Route: 048
  5. FEMARA [Concomitant]
     Indication: BREAST CANCER
     Dosage: UNK
     Route: 048

REACTIONS (2)
  - DRUG INEFFECTIVE [None]
  - SURGERY [None]
